FAERS Safety Report 13283933 (Version 1)
Quarter: 2017Q1

REPORT INFORMATION
  Report Type: Report from Study
  Country: US (occurrence: US)
  Receive Date: 20170301
  Receipt Date: 20170301
  Transmission Date: 20170428
  Serious: Yes (Other)
  Sender: FDA-Public Use
  Company Number: US-PFIZER INC-2017081594

PATIENT
  Age: 74 Year
  Sex: Female

DRUGS (2)
  1. IBRANCE [Suspect]
     Active Substance: PALBOCICLIB
     Indication: BREAST CANCER
     Dosage: 125 MG, CYCLIC (DAILY FOR DAY 1 - DAY 21 FOLLOWED BY 7 DAYS OFF EVERY 28 DAYS)
     Route: 048
     Dates: start: 20160311, end: 20160410
  2. IBRANCE [Suspect]
     Active Substance: PALBOCICLIB
     Dosage: 100 MG, CYCLIC (DAILY FOR DAY 1 - DAY 21 FOLLOWED BY 7 DAYS OFF EVERY 28 DAYS)
     Route: 048
     Dates: start: 20160411

REACTIONS (6)
  - Weight decreased [Unknown]
  - Neoplasm progression [Unknown]
  - Bone marrow failure [Unknown]
  - Asthenia [Unknown]
  - Headache [Unknown]
  - Influenza [Unknown]
